FAERS Safety Report 9491430 (Version 2)
Quarter: 2013Q1

REPORT INFORMATION
  Report Type: Not Available
  Country: US (occurrence: US)
  Receive Date: 20120619
  Receipt Date: 20120619
  Transmission Date: 20140127
  Serious: Yes (Hospitalization)
  Sender: FDA-Public Use
  Company Number: US-LUNDBECK-DKLU1074696

PATIENT
  Age: 52 None
  Sex: Male
  Weight: 128.1 kg

DRUGS (6)
  1. CLOBAZAM [Suspect]
     Indication: LENNOX-GASTAUT SYNDROME
     Route: 048
     Dates: start: 20090128
  2. CLOBAZAM [Suspect]
     Route: 048
     Dates: start: 20110126
  3. TEGRETOL XR [Concomitant]
     Indication: EPILEPSY
     Route: 048
     Dates: start: 20110514
  4. PHENOBARBITAL [Concomitant]
     Indication: EPILEPSY
     Route: 048
     Dates: start: 20110128
  5. SIMVASTATIN [Concomitant]
     Indication: HYPERCHOLESTEROLAEMIA
     Route: 048
     Dates: start: 2004
  6. MULTIVITAMIN [Concomitant]
     Indication: NUTRITIONAL SUPPLEMENTATION
     Route: 048
     Dates: start: 2009

REACTIONS (2)
  - Viral infection [Recovered/Resolved]
  - Convulsion [Recovered/Resolved]
